FAERS Safety Report 6026670-2 (Version None)
Quarter: 2008Q4

REPORT INFORMATION
  Report Type: 
  Country: None (occurrence: None)
  Receive Date: 20081231
  Receipt Date: 20081219
  Transmission Date: 20090506
  Serious: Yes (Congenital Anomaly)
  Sender: FDA-Public Use
  Company Number: 8040547

PATIENT

DRUGS (1)
  1. KEPPRA [Suspect]
     Dosage: 500 MG 2/D

REACTIONS (3)
  - CARDIAC SEPTAL DEFECT [None]
  - MATERNAL DRUGS AFFECTING FOETUS [None]
  - PIERRE ROBIN SYNDROME [None]
